FAERS Safety Report 24767461 (Version 2)
Quarter: 2025Q1

REPORT INFORMATION
  Report Type: Spontaneous
  Country: GB (occurrence: GB)
  Receive Date: 20241223
  Receipt Date: 20250117
  Transmission Date: 20250408
  Serious: Yes (Death, Other)
  Sender: IPSEN BIOPHARMACEUTICALS, INC.
  Company Number: GB-IPSEN Group, Research and Development-2024-26291

PATIENT
  Age: 46 Year
  Sex: Male

DRUGS (3)
  1. LANREOTIDE ACETATE [Suspect]
     Active Substance: LANREOTIDE ACETATE
     Indication: Neuroendocrine tumour
     Route: 065
  2. LANREOTIDE ACETATE [Suspect]
     Active Substance: LANREOTIDE ACETATE
     Indication: Pancreatic neuroendocrine tumour
  3. OCTREOTIDE [Concomitant]
     Active Substance: OCTREOTIDE
     Route: 058

REACTIONS (1)
  - Death [Fatal]
